FAERS Safety Report 5611741-2 (Version None)
Quarter: 2008Q1

REPORT INFORMATION
  Report Type: 
  Country: None (occurrence: None)
  Receive Date: 20080128
  Receipt Date: 20070202
  Transmission Date: 20080703
  Serious: Yes (Death)
  Sender: FDA-Public Use
  Company Number: DSA_29322_2007

PATIENT

DRUGS (2)
  1. DILTIAZEM HYDROCHLORIDE (TIAZAC XC-DILTIAZEM HYDROCHLORIDE) [Suspect]
  2. BETA BLOCKER (UNSPECIFIED) (BETA BLOCKER (UNSPECIFIED)) [Suspect]

REACTIONS (1)
  - DEATH [None]
